FAERS Safety Report 18589633 (Version 1)
Quarter: 2020Q4

REPORT INFORMATION
  Report Type: Spontaneous
  Country: US (occurrence: US)
  Receive Date: 20201207
  Receipt Date: 20201207
  Transmission Date: 20210114
  Serious: Yes (Disabling, Other)
  Sender: FDA-Public Use
  Company Number: None

PATIENT
  Age: 13 Year
  Sex: Male

DRUGS (1)
  1. DUPIXENT [Suspect]
     Active Substance: DUPILUMAB
     Indication: DERMATITIS ATOPIC
     Route: 058
     Dates: start: 201809, end: 202011

REACTIONS (6)
  - Eosinophil count increased [None]
  - Hodgkin^s disease [None]
  - Basophil count increased [None]
  - Blood immunoglobulin E increased [None]
  - Lung consolidation [None]
  - White blood cell count increased [None]

NARRATIVE: CASE EVENT DATE: 20201201
